FAERS Safety Report 4575816-1 (Version None)
Quarter: 2005Q1

REPORT INFORMATION
  Report Type: 
  Country: None (occurrence: None)
  Receive Date: 20050204
  Receipt Date: 20050125
  Transmission Date: 20050727
  Serious: Yes (Death, Hospitalization)
  Sender: FDA-Public Use
  Company Number: 2005020300

PATIENT
  Age: 81 Year
  Sex: Male

DRUGS (3)
  1. DOXAZOSIN MESYLATE [Suspect]
     Indication: BENIGN PROSTATIC HYPERPLASIA
     Dosage: 4 MG (4 MG, SINGLE INTERVAL:  EVERY DAY), ORAL
     Route: 048
     Dates: start: 19980528, end: 20050113
  2. MIDAZOLAM HCL [Concomitant]
  3. CHLORTALIDONE (CHLORTALIDONE) [Concomitant]

REACTIONS (2)
  - INFLUENZA [None]
  - SUDDEN DEATH [None]
